FAERS Safety Report 7121474-1 (Version None)
Quarter: 2010Q4

REPORT INFORMATION
  Report Type: 
  Country: None (occurrence: None)
  Receive Date: 20101119
  Receipt Date: 20101119
  Transmission Date: 20110411
  Serious: No
  Sender: FDA-Public Use
  Company Number: None

PATIENT
  Sex: Female
  Weight: 52.2 kg

DRUGS (2)
  1. CISPLATIN [Suspect]
     Dosage: 117 MG
     Dates: end: 20101026
  2. ETOPOSIDE [Suspect]
     Dosage: 468 MG
     Dates: end: 20101029

REACTIONS (1)
  - NEUTROPENIA [None]
